FAERS Safety Report 10334797 (Version 1)
Quarter: 2014Q3

REPORT INFORMATION
  Report Type: Spontaneous
  Country: US (occurrence: None)
  Receive Date: 20140722
  Receipt Date: 20140722
  Transmission Date: 20150326
  Serious: No
  Sender: FDA-Public Use
  Company Number: None

PATIENT
  Age: 78 Year
  Sex: Male
  Weight: 76.2 kg

DRUGS (11)
  1. METAMUCIL [Concomitant]
     Active Substance: PLANTAGO SEED
  2. LOVASTATIN. [Concomitant]
     Active Substance: LOVASTATIN
  3. VIAGRA [Concomitant]
     Active Substance: SILDENAFIL CITRATE
  4. TIMOLOL [Concomitant]
     Active Substance: TIMOLOL
  5. CENTRUM SILVER [Concomitant]
     Active Substance: VITAMINS
  6. LISINIPRIL 5MG [Concomitant]
     Active Substance: LISINOPRIL
  7. LATANOPROST. [Concomitant]
     Active Substance: LATANOPROST
  8. DOXAZOSIN [Suspect]
     Active Substance: DOXAZOSIN\DOXAZOSIN MESYLATE
     Indication: DYSURIA
     Route: 048
     Dates: start: 20140707, end: 20140707
  9. BABY ASPIRIN [Concomitant]
     Active Substance: ASPIRIN
  10. VITAMIN D3 [Concomitant]
     Active Substance: CHOLECALCIFEROL
  11. FISH OIL [Concomitant]
     Active Substance: FISH OIL

REACTIONS (8)
  - Dizziness [None]
  - Hyperhidrosis [None]
  - Feeling abnormal [None]
  - Arthralgia [None]
  - Asthenia [None]
  - Nasal congestion [None]
  - Nausea [None]
  - Headache [None]

NARRATIVE: CASE EVENT DATE: 20140707
